FAERS Safety Report 5213207-0 (Version None)
Quarter: 2007Q1

REPORT INFORMATION
  Report Type: 
  Country: None (occurrence: None)
  Receive Date: 20070119
  Receipt Date: 20070117
  Transmission Date: 20070707
  Serious: Yes (Other)
  Sender: FDA-Public Use
  Company Number: IT-GLAXOSMITHKLINE-B0454637A

PATIENT
  Age: 34 Year
  Sex: Male

DRUGS (2)
  1. AUGMENTIN '125' [Suspect]
     Indication: TOOTHACHE
     Dosage: 1G PER DAY
     Route: 048
     Dates: start: 20070107, end: 20070107
  2. KETOPROFEN [Suspect]
     Indication: TOOTHACHE
     Route: 048
     Dates: start: 20070107, end: 20070107

REACTIONS (2)
  - LARYNGEAL OEDEMA [None]
  - RASH [None]
